FAERS Safety Report 5385256-3 (Version None)
Quarter: 2007Q3

REPORT INFORMATION
  Report Type: 
  Country: None (occurrence: None)
  Receive Date: 20070709
  Receipt Date: 20070709
  Transmission Date: 20080115
  Serious: No
  Sender: FDA-Public Use
  Company Number: None

PATIENT
  Sex: Male
  Weight: 90 kg

DRUGS (13)
  1. TEMOZOLOMIDE [Suspect]
     Dosage: 320 MG
  2. LEUCOVORIN CALCIUM [Suspect]
     Dosage: 430 MG
  3. METHOTREXATE [Suspect]
     Dosage: 13273 MG
  4. ATENOLOL [Concomitant]
  5. ATIVAN [Concomitant]
  6. BACTRIM DS [Concomitant]
  7. COLACE [Concomitant]
  8. DULCOLAX [Concomitant]
  9. KEPPRA [Concomitant]
  10. NORVASC [Concomitant]
  11. SENNA [Concomitant]
  12. SODIUM BICARBONATE [Concomitant]
  13. TOBRADEX [Concomitant]

REACTIONS (1)
  - NEUTROPHIL COUNT DECREASED [None]
